FAERS Safety Report 9449668 (Version 1)
Quarter: 2013Q3

REPORT INFORMATION
  Report Type: Spontaneous
  Country: US (occurrence: US)
  Receive Date: 20130809
  Receipt Date: 20130809
  Transmission Date: 20140515
  Serious: No
  Sender: FDA-Public Use
  Company Number: US-PFIZER INC-2013231294

PATIENT
  Age: 70 Year
  Sex: Female
  Weight: 72.11 kg

DRUGS (11)
  1. LYRICA [Suspect]
     Indication: FIBROMYALGIA
     Dosage: 75 MG, 2X/DAY
     Route: 048
     Dates: start: 20130805
  2. WELCHOL [Concomitant]
     Indication: BLOOD CHOLESTEROL INCREASED
     Dosage: 625 MG, 2X/DAY
     Route: 048
  3. METFORMIN [Concomitant]
     Indication: DIABETES MELLITUS
     Dosage: 1000 MG, 2X/DAY
     Route: 048
  4. NEXIUM [Concomitant]
     Dosage: 40 MG, 1X/DAY
     Route: 048
  5. BABY ASPIRIN [Concomitant]
     Dosage: 81 MG, UNK
  6. CALCIUM [Concomitant]
     Dosage: 600 MG, UNK
  7. LOVAZA [Concomitant]
     Dosage: 1 MG, 4X/DAY
  8. SINGULAIR [Concomitant]
     Dosage: AT AN UNKNOWN DOSE DAILY
     Route: 048
  9. FAMOTIDINE [Concomitant]
     Dosage: 40 MG, UNK
  10. LEXAPRO [Concomitant]
     Dosage: AT AN UNKNOWN DOSE DAILY
     Route: 048
  11. RAMIPRIL [Concomitant]
     Dosage: 10MG DAILY
     Route: 048

REACTIONS (5)
  - Vomiting [Unknown]
  - Dizziness [Unknown]
  - Vision blurred [Unknown]
  - Diarrhoea [Unknown]
  - Malaise [Unknown]
